FAERS Safety Report 7781607-0 (Version None)
Quarter: 2011Q3

REPORT INFORMATION
  Report Type: 
  Country: None (occurrence: None)
  Receive Date: 20110927
  Receipt Date: 20110512
  Transmission Date: 20111222
  Serious: No
  Sender: FDA-Public Use
  Company Number: US-BAYER-2011-042372

PATIENT
  Age: 79 Year
  Sex: Male
  Weight: 72.562 kg

DRUGS (3)
  1. CENTRUM [Concomitant]
     Indication: VITAMIN SUPPLEMENTATION
  2. ALEVE (CAPLET) [Suspect]
     Indication: BACK PAIN
     Dosage: 2 DF, EVERY 12 HOURS
     Route: 048
     Dates: start: 20110401, end: 20110509
  3. CHLORZOXAZONE [Concomitant]
     Indication: ANALGESIC THERAPY

REACTIONS (1)
  - NO ADVERSE EVENT [None]
